FAERS Safety Report 11514322 (Version 2)
Quarter: 2015Q3

REPORT INFORMATION
  Report Type: Spontaneous
  Country: US (occurrence: US)
  Receive Date: 20150916
  Receipt Date: 20150921
  Transmission Date: 20151125
  Serious: No
  Sender: FDA-Public Use
  Company Number: US-PFIZER INC-2015301621

PATIENT
  Age: 78 Year
  Sex: Male
  Weight: 74 kg

DRUGS (2)
  1. GABAPENTIN. [Suspect]
     Active Substance: GABAPENTIN
     Dosage: 3 DF, UNK
  2. GABAPENTIN. [Suspect]
     Active Substance: GABAPENTIN
     Dosage: 4 DF, UNK

REACTIONS (3)
  - Burning sensation [Unknown]
  - Intentional product use issue [Unknown]
  - Pain [Unknown]
